FAERS Safety Report 5299288-7 (Version None)
Quarter: 2007Q2

REPORT INFORMATION
  Report Type: 
  Country: None (occurrence: None)
  Receive Date: 20070417
  Receipt Date: 20070412
  Transmission Date: 20071010
  Serious: Yes (Other)
  Sender: FDA-Public Use
  Company Number: US-GENENTECH-239861

PATIENT
  Sex: Female
  Weight: 85.714 kg

DRUGS (2)
  1. XOLAIR [Suspect]
     Indication: ASTHMA
     Dosage: 150 MG, 1/MONTH
     Route: 058
     Dates: start: 20060821, end: 20070404
  2. CLARITHROMYCIN [Concomitant]
     Indication: UPPER RESPIRATORY TRACT INFECTION

REACTIONS (1)
  - CHEST DISCOMFORT [None]
